FAERS Safety Report 20622441 (Version 2)
Quarter: 2022Q1

REPORT INFORMATION
  Report Type: Spontaneous
  Country: CN (occurrence: CN)
  Receive Date: 20220322
  Receipt Date: 20220324
  Transmission Date: 20220424
  Serious: Yes (Other)
  Sender: FDA-Public Use
  Company Number: CN-PFIZER INC-202200418221

PATIENT
  Age: 15 Year
  Sex: Male

DRUGS (5)
  1. CYTARABINE [Suspect]
     Active Substance: CYTARABINE
     Indication: Acute leukaemia
     Dosage: 100 MG, 2X/DAY, DAY 1 TO DAY 7
  2. CYTARABINE [Suspect]
     Active Substance: CYTARABINE
     Dosage: 3 G
  3. IDARUBICIN HYDROCHLORIDE [Concomitant]
     Active Substance: IDARUBICIN HYDROCHLORIDE
     Indication: Acute leukaemia
     Dosage: 20 MG, DAY 1
  4. IDARUBICIN HYDROCHLORIDE [Concomitant]
     Active Substance: IDARUBICIN HYDROCHLORIDE
     Dosage: 10 MG, DAY 2 TO DAY 3
  5. IDARUBICIN HYDROCHLORIDE [Concomitant]
     Active Substance: IDARUBICIN HYDROCHLORIDE
     Dosage: 1 COURSE

REACTIONS (1)
  - Posterior reversible encephalopathy syndrome [Recovering/Resolving]
